FAERS Safety Report 17914132 (Version 1)
Quarter: 2020Q2

REPORT INFORMATION
  Report Type: Spontaneous
  Country: US (occurrence: US)
  Receive Date: 20200619
  Receipt Date: 20200619
  Transmission Date: 20200714
  Serious: No
  Sender: FDA-Public Use
  Company Number: US-GLAXOSMITHKLINE-US2020AMR102286

PATIENT

DRUGS (4)
  1. NUCALA [Suspect]
     Active Substance: MEPOLIZUMAB
     Indication: ASTHMA
     Dosage: UNK, CYC
     Dates: start: 201912
  2. NUCALA [Suspect]
     Active Substance: MEPOLIZUMAB
     Indication: COUGH
  3. NUCALA [Suspect]
     Active Substance: MEPOLIZUMAB
     Indication: DYSPNOEA
  4. NUCALA [Suspect]
     Active Substance: MEPOLIZUMAB
     Indication: WHEEZING

REACTIONS (2)
  - Asthma [Unknown]
  - Bedridden [Unknown]
